FAERS Safety Report 23323583 (Version 1)
Quarter: 2023Q4

REPORT INFORMATION
  Report Type: Other
  Country: US (occurrence: None)
  Receive Date: 20231220
  Receipt Date: 20231220
  Transmission Date: 20240110
  Serious: Yes (Other)
  Sender: FDA-Public Use
  Company Number: US-ROCHE-3381202

PATIENT
  Age: 85 Year
  Sex: Male

DRUGS (5)
  1. RITUXIMAB [Suspect]
     Active Substance: RITUXIMAB
     Indication: Waldenstrom^s macroglobulinaemia
     Route: 065
  2. BENDAMUSTINE [Suspect]
     Active Substance: BENDAMUSTINE
     Indication: Waldenstrom^s macroglobulinaemia
     Route: 065
  3. FOSCARNET [Concomitant]
     Active Substance: FOSCARNET
     Route: 050
  4. GANCICLOVIR [Concomitant]
     Active Substance: GANCICLOVIR
     Route: 042
  5. VALGANCICLOVIR [Concomitant]
     Active Substance: VALGANCICLOVIR
     Route: 048

REACTIONS (1)
  - Cytomegalovirus chorioretinitis [Unknown]
